FAERS Safety Report 13640820 (Version 1)
Quarter: 2017Q2

REPORT INFORMATION
  Report Type: Spontaneous
  Country: GB (occurrence: GB)
  Receive Date: 20170612
  Receipt Date: 20170612
  Transmission Date: 20170830
  Serious: Yes (Other)
  Sender: FDA-Public Use
  Company Number: GB-AMGEN-GBRSP2017086042

PATIENT
  Age: 69 Year
  Sex: Female

DRUGS (4)
  1. ARANESP [Suspect]
     Active Substance: DARBEPOETIN ALFA
     Indication: MYELODYSPLASTIC SYNDROME
     Dosage: 150 MUG, QWK
     Route: 065
     Dates: start: 201703
  2. ARANESP [Suspect]
     Active Substance: DARBEPOETIN ALFA
     Indication: BLOOD ERYTHROPOIETIN DECREASED
     Dosage: 200 MUG, QWK
     Route: 065
     Dates: start: 201705
  3. IRON [Concomitant]
     Active Substance: IRON
     Dosage: UNK
  4. VITAMIN B12 [Concomitant]
     Active Substance: CYANOCOBALAMIN
     Dosage: UNK

REACTIONS (4)
  - Cardiac disorder [Unknown]
  - Blood iron decreased [Unknown]
  - Off label use [Unknown]
  - Malignant melanoma [Unknown]

NARRATIVE: CASE EVENT DATE: 2017
